FAERS Safety Report 9815036 (Version 1)
Quarter: 2014Q1

REPORT INFORMATION
  Report Type: Report from Study
  Country: FR (occurrence: FR)
  Receive Date: 20140114
  Receipt Date: 20140114
  Transmission Date: 20141002
  Serious: Yes (Other)
  Sender: FDA-Public Use
  Company Number: FR-ROCHE-1330130

PATIENT
  Sex: 0

DRUGS (6)
  1. BEVACIZUMAB [Suspect]
     Indication: COLORECTAL CANCER METASTATIC
     Dosage: INDUCTION, DAY 1
     Route: 042
  2. BEVACIZUMAB [Suspect]
     Dosage: MAINTENANCE TREATMENT, OVER 60 MINUTES
     Route: 042
  3. CAPECITABINE [Suspect]
     Indication: COLORECTAL CANCER METASTATIC
     Dosage: DAY 1 TO 14
     Route: 065
  4. IRINOTECAN HYDROCHLORIDE [Suspect]
     Indication: COLORECTAL CANCER METASTATIC
     Dosage: INDUCTION, DAY 1 AND DAY 3
     Route: 065
  5. CALCIUM FOLINATE [Suspect]
     Indication: COLORECTAL CANCER METASTATIC
     Dosage: INDUCTION, DAY 1
     Route: 065
  6. FLUOROURACIL [Suspect]
     Indication: COLORECTAL CANCER METASTATIC
     Dosage: INDUCTION, A 46-HOUR CONTINUOUS INFUSION
     Route: 042

REACTIONS (10)
  - Palmar-plantar erythrodysaesthesia syndrome [Unknown]
  - Nausea [Unknown]
  - Vomiting [Unknown]
  - Diarrhoea [Unknown]
  - Fatigue [Unknown]
  - White blood cell count decreased [Unknown]
  - Neutropenia [Unknown]
  - Febrile neutropenia [Unknown]
  - Hypertension [Unknown]
  - Deep vein thrombosis [Unknown]
